FAERS Safety Report 20383375 (Version 4)
Quarter: 2022Q1

REPORT INFORMATION
  Report Type: Report from Study
  Country: US (occurrence: US)
  Receive Date: 20220127
  Receipt Date: 20220222
  Transmission Date: 20220424
  Serious: Yes (Other)
  Sender: FDA-Public Use
  Company Number: US-NOVARTISPH-NVSC2022US016919

PATIENT
  Age: 77 Year
  Sex: Female

DRUGS (1)
  1. ENTRESTO [Suspect]
     Active Substance: SACUBITRIL\VALSARTAN
     Indication: Cardiac failure
     Dosage: 1 DOSAGE FORM, BID
     Route: 048
     Dates: start: 20220111

REACTIONS (10)
  - Thrombosis [Unknown]
  - Hypokalaemia [Unknown]
  - Somnolence [Unknown]
  - Decreased appetite [Not Recovered/Not Resolved]
  - Weight decreased [Unknown]
  - COVID-19 [Recovering/Resolving]
  - Cough [Unknown]
  - Epistaxis [Unknown]
  - Hyponatraemia [Unknown]
  - Product availability issue [Unknown]

NARRATIVE: CASE EVENT DATE: 20220210
